FAERS Safety Report 18883594 (Version 1)
Quarter: 2021Q1

REPORT INFORMATION
  Report Type: Spontaneous
  Country: US (occurrence: US)
  Receive Date: 20210212
  Receipt Date: 20210212
  Transmission Date: 20210420
  Serious: No
  Sender: FDA-Public Use
  Company Number: US-SA-2021SA044809

PATIENT
  Age: 49 Year
  Sex: Female

DRUGS (9)
  1. DUPIXENT [Suspect]
     Active Substance: DUPILUMAB
     Indication: ARTHRALGIA
  2. DUPIXENT [Suspect]
     Active Substance: DUPILUMAB
     Indication: RHINITIS ALLERGIC
  3. XOLAIR [Concomitant]
     Active Substance: OMALIZUMAB
  4. DUPIXENT [Suspect]
     Active Substance: DUPILUMAB
     Indication: DERMATITIS ATOPIC
  5. DUPIXENT [Suspect]
     Active Substance: DUPILUMAB
     Indication: ASTHMA
  6. DUPIXENT [Suspect]
     Active Substance: DUPILUMAB
     Indication: MIGRAINE
  7. DUPIXENT [Suspect]
     Active Substance: DUPILUMAB
     Indication: MIGRAINE
     Dosage: 300 MG
     Route: 058
     Dates: start: 20201201
  8. DUPIXENT [Suspect]
     Active Substance: DUPILUMAB
     Indication: SEIZURE
  9. DUPIXENT [Suspect]
     Active Substance: DUPILUMAB
     Indication: BACK PAIN

REACTIONS (2)
  - Respiratory disorder [Unknown]
  - Inappropriate schedule of product administration [Unknown]

NARRATIVE: CASE EVENT DATE: 20201215
